FAERS Safety Report 4440348-8 (Version None)
Quarter: 2004Q3

REPORT INFORMATION
  Report Type: 
  Country: None (occurrence: None)
  Receive Date: 20040831
  Receipt Date: 20040521
  Transmission Date: 20050211
  Serious: No
  Sender: FDA-Public Use
  Company Number: 702004

PATIENT
  Age: 24 Year
  Sex: Female
  Weight: 77.1115 kg

DRUGS (3)
  1. AMEVIVE [Suspect]
     Indication: PSORIASIS
     Dosage: 15 MG QW IM
     Route: 030
     Dates: start: 20040216, end: 20040521
  2. BIRTH CONTROL PILL [Concomitant]
  3. TOPICAL STEROIDS [Concomitant]

REACTIONS (1)
  - BLOOD PRESSURE INCREASED [None]
